FAERS Safety Report 12167676 (Version 1)
Quarter: 2016Q1

REPORT INFORMATION
  Report Type: Spontaneous
  Country: US (occurrence: US)
  Receive Date: 20160310
  Receipt Date: 20160310
  Transmission Date: 20160526
  Serious: No
  Sender: FDA-Public Use
  Company Number: US-009507513-1602USA009530

PATIENT
  Age: 78 Year
  Sex: Male

DRUGS (1)
  1. BELSOMRA [Suspect]
     Active Substance: SUVOREXANT
     Indication: INSOMNIA
     Dosage: 10 MG, QD
     Route: 048
     Dates: start: 20160213, end: 20160218

REACTIONS (5)
  - Fall [Unknown]
  - Feeling abnormal [Unknown]
  - Hallucination [Unknown]
  - Somnambulism [Unknown]
  - Contusion [Unknown]

NARRATIVE: CASE EVENT DATE: 201602
